FAERS Safety Report 18609365 (Version 2)
Quarter: 2020Q4

REPORT INFORMATION
  Report Type: Spontaneous
  Country: IT (occurrence: IT)
  Receive Date: 20201214
  Receipt Date: 20201230
  Transmission Date: 20210114
  Serious: Yes (Death, Life-Threatening, Hospitalization, Other)
  Sender: FDA-Public Use
  Company Number: IT-AUROBINDO-AUR-APL-2020-057770

PATIENT
  Age: 79 Year
  Sex: Male

DRUGS (10)
  1. DEXAMETHASONE. [Suspect]
     Active Substance: DEXAMETHASONE
     Indication: DRUG HYPERSENSITIVITY
  2. CETIRIZINE [Suspect]
     Active Substance: CETIRIZINE HYDROCHLORIDE
     Indication: DRUG HYPERSENSITIVITY
     Dosage: UNK
     Route: 065
  3. ONDANSETRON [Concomitant]
     Active Substance: ONDANSETRON
     Indication: PREMEDICATION
     Dosage: UNK
     Route: 065
  4. DEXAMETHASONE. [Suspect]
     Active Substance: DEXAMETHASONE
     Indication: PREMEDICATION
     Dosage: UNK
     Route: 042
  5. PACLITAXEL CONCENTRATE FOR SOLUTION FOR INFUSION [Suspect]
     Active Substance: PACLITAXEL
     Indication: TRANSITIONAL CELL CARCINOMA
  6. RANITIDINE. [Concomitant]
     Active Substance: RANITIDINE
     Indication: PREMEDICATION
     Dosage: UNK
     Route: 065
  7. PACLITAXEL CONCENTRATE FOR SOLUTION FOR INFUSION [Suspect]
     Active Substance: PACLITAXEL
     Indication: TRANSITIONAL CELL CARCINOMA RECURRENT
     Dosage: PACLITAXEL (110 MG) MIXED WITH 500CM3 PHYSIOLOGICAL SOLUTION AND INFUSED AT A RATE OF 50ML/H
     Route: 065
  8. EPINEPHRINE. [Suspect]
     Active Substance: EPINEPHRINE
     Indication: CARDIAC ARREST
     Dosage: 0.5 MILLIGRAM
     Route: 030
  9. CETIRIZINE [Suspect]
     Active Substance: CETIRIZINE HYDROCHLORIDE
     Indication: PREMEDICATION
  10. PACLITAXEL CONCENTRATE FOR SOLUTION FOR INFUSION [Suspect]
     Active Substance: PACLITAXEL
     Indication: METASTASES TO LYMPH NODES

REACTIONS (15)
  - Emphysema [Fatal]
  - Myocardial oedema [Fatal]
  - Cardiac arrest [Fatal]
  - Cough [Fatal]
  - Drug ineffective [Fatal]
  - Brain oedema [Fatal]
  - Hypersensitivity [Fatal]
  - Dyspnoea [Fatal]
  - Cardiomegaly [Fatal]
  - Splenomegaly [Fatal]
  - Anaphylactic reaction [Fatal]
  - Off label use [Unknown]
  - Pulmonary oedema [Fatal]
  - Hepatomegaly [Fatal]
  - Drug hypersensitivity [Fatal]
